FAERS Safety Report 7771494-9 (Version None)
Quarter: 2011Q3

REPORT INFORMATION
  Report Type: 
  Country: None (occurrence: None)
  Receive Date: 20110922
  Receipt Date: 20100726
  Transmission Date: 20111222
  Serious: Yes (Other)
  Sender: FDA-Public Use
  Company Number: US-ASTRAZENECA-2010SE25186

PATIENT
  Sex: Female

DRUGS (4)
  1. GEODON [Suspect]
     Route: 048
  2. ZYPREXA [Suspect]
     Route: 065
  3. SEROQUEL [Suspect]
     Route: 048
  4. ABILIFY [Suspect]
     Route: 065

REACTIONS (1)
  - ELECTROCARDIOGRAM QT PROLONGED [None]
